FAERS Safety Report 9700165 (Version 1)
Quarter: 2013Q4

REPORT INFORMATION
  Report Type: Spontaneous
  Country: US (occurrence: None)
  Receive Date: 20131118
  Receipt Date: 20131118
  Transmission Date: 20140711
  Serious: Yes (Hospitalization, Other)
  Sender: FDA-Public Use
  Company Number: 13-04704

PATIENT
  Sex: 0

DRUGS (1)
  1. ALBUTEROL SULFATE 0.083 2.5 MG/ 3ML NEPHRON PHARMACEUTICALS CORPORATIO [Suspect]

REACTIONS (1)
  - Neutropenia [None]
